FAERS Safety Report 8898734 (Version 7)
Quarter: 2016Q3

REPORT INFORMATION
  Report Type: Spontaneous
  Country: US (occurrence: US)
  Receive Date: 20121109
  Receipt Date: 20160801
  Transmission Date: 20161109
  Serious: Yes (Hospitalization, Disabling, Other)
  Sender: FDA-Public Use
  Company Number: US-009507513-1211USA004331

PATIENT
  Sex: Female
  Weight: 76.19 kg

DRUGS (4)
  1. ALENDRONATE SODIUM. [Suspect]
     Active Substance: ALENDRONATE SODIUM
     Indication: PRODUCT USED FOR UNKNOWN INDICATION
     Dosage: 70 MG, UNK
     Route: 065
  2. CLARITIN [Concomitant]
     Active Substance: LORATADINE
     Indication: HYPERSENSITIVITY
     Dosage: UNK
     Route: 048
     Dates: start: 2009
  3. FOSAMAX [Suspect]
     Active Substance: ALENDRONATE SODIUM
     Indication: OSTEOPOROSIS
     Dosage: 70 MG, UNK
     Route: 048
     Dates: start: 20081215, end: 20090417
  4. BETASERON [Concomitant]
     Active Substance: INTERFERON BETA-1B
     Indication: MULTIPLE SCLEROSIS
     Dosage: 0.25 MG, Q 48 HOURS
     Route: 058
     Dates: start: 2001

REACTIONS (15)
  - Femur fracture [Recovered/Resolved]
  - Limb asymmetry [Recovered/Resolved]
  - Umbilical hernia repair [Unknown]
  - Back pain [Unknown]
  - Mobility decreased [Unknown]
  - Fracture malunion [Recovering/Resolving]
  - Osteoarthritis [Unknown]
  - Fall [Unknown]
  - Iron deficiency anaemia [Unknown]
  - Costochondritis [Unknown]
  - Gait disturbance [Not Recovered/Not Resolved]
  - Osteopenia [Unknown]
  - Complication associated with device [Unknown]
  - Internal fixation of fracture [Not Recovered/Not Resolved]
  - Muscular weakness [Unknown]

NARRATIVE: CASE EVENT DATE: 20090102
